FAERS Safety Report 6261367-5 (Version None)
Quarter: 2009Q3

REPORT INFORMATION
  Report Type: 
  Country: None (occurrence: None)
  Receive Date: 20090709
  Receipt Date: 20090630
  Transmission Date: 20100115
  Serious: Yes (Death)
  Sender: FDA-Public Use
  Company Number: LV-PFIZER INC-2009236596

PATIENT
  Age: 27 Year

DRUGS (1)
  1. ZELDOX [Suspect]
     Indication: SCHIZOPHRENIA
     Dosage: 40 MG, 2X/DAY
     Route: 048

REACTIONS (1)
  - DEATH [None]
